FAERS Safety Report 5564138-8 (Version None)
Quarter: 2007Q4

REPORT INFORMATION
  Report Type: 
  Country: None (occurrence: None)
  Receive Date: 20071212
  Receipt Date: 20071130
  Transmission Date: 20080405
  Serious: Yes (Other)
  Sender: FDA-Public Use
  Company Number: WAES 0708GBR00137

PATIENT
  Age: 69 Year
  Sex: Female

DRUGS (5)
  1. VYTORIN [Suspect]
     Indication: HYPERCHOLESTEROLAEMIA
     Dosage: 10-40 MG/DAILY, PO
     Route: 048
     Dates: start: 20070516, end: 20070606
  2. VYTORIN [Suspect]
     Indication: HYPERCHOLESTEROLAEMIA
     Dosage: 10-40 MG/DAILY, PO
     Route: 048
     Dates: start: 20070608, end: 20070608
  3. VYTORIN [Suspect]
     Indication: HYPERCHOLESTEROLAEMIA
     Dosage: 10-40 MG/DAILY, PO
     Route: 048
     Dates: start: 20070610, end: 20070626
  4. BERK-CO-TENIDONE [Concomitant]
  5. ASPIRIN [Concomitant]

REACTIONS (2)
  - IDIOPATHIC THROMBOCYTOPENIC PURPURA [None]
  - WHEEZING [None]
